FAERS Safety Report 6840527-6 (Version None)
Quarter: 2010Q3

REPORT INFORMATION
  Report Type: 
  Country: None (occurrence: None)
  Receive Date: 20100714
  Receipt Date: 20100707
  Transmission Date: 20110219
  Serious: Yes (Hospitalization)
  Sender: FDA-Public Use
  Company Number: A0869773A

PATIENT
  Sex: Male

DRUGS (2)
  1. AVANDIA [Suspect]
     Dosage: 4MG PER DAY
     Route: 048
     Dates: start: 20020204, end: 20050624
  2. AVANDAMET [Suspect]
     Route: 048
     Dates: start: 20051227, end: 20070302

REACTIONS (1)
  - MYOCARDIAL INFARCTION [None]
